FAERS Safety Report 20715229 (Version 1)
Quarter: 2022Q2

REPORT INFORMATION
  Report Type: Spontaneous
  Country: FR (occurrence: None)
  Receive Date: 20220415
  Receipt Date: 20220415
  Transmission Date: 20220721
  Serious: Yes (Hospitalization)
  Sender: FDA-Public Use
  Company Number: 2022A141050

PATIENT
  Age: 56 Year
  Sex: Male

DRUGS (11)
  1. TAGRISSO [Suspect]
     Active Substance: OSIMERTINIB
     Indication: Lung adenocarcinoma
     Route: 048
     Dates: start: 20211117, end: 20220111
  2. ALLOPURINOL [Suspect]
     Active Substance: ALLOPURINOL
     Indication: Product used for unknown indication
     Route: 048
     Dates: end: 20220111
  3. ALPRAZOLAM [Concomitant]
     Active Substance: ALPRAZOLAM
  4. PAROXETINE MESYLATE [Concomitant]
     Active Substance: PAROXETINE MESYLATE
  5. POLARAMINE [Concomitant]
     Active Substance: DEXCHLORPHENIRAMINE MALEATE
  6. PREGABALIN [Concomitant]
     Active Substance: PREGABALIN
  7. IMODIUM [Concomitant]
     Active Substance: LOPERAMIDE HYDROCHLORIDE
  8. ALLOPURINOL [Concomitant]
     Active Substance: ALLOPURINOL
  9. SODIUM BICARBONATE [Concomitant]
     Active Substance: SODIUM BICARBONATE
  10. ATARAX [Concomitant]
     Active Substance: HYDROXYZINE HYDROCHLORIDE
  11. SKENAN [Concomitant]
     Active Substance: MORPHINE SULFATE

REACTIONS (4)
  - Pyrexia [Recovered/Resolved]
  - Hepatitis [Recovering/Resolving]
  - Taste disorder [Recovered/Resolved]
  - Hyperaesthesia [Recovered/Resolved]

NARRATIVE: CASE EVENT DATE: 20220101
